FAERS Safety Report 8075510-9 (Version None)
Quarter: 2012Q1

REPORT INFORMATION
  Report Type: 
  Country: None (occurrence: None)
  Receive Date: 20120127
  Receipt Date: 20120119
  Transmission Date: 20120608
  Serious: Yes (Hospitalization)
  Sender: FDA-Public Use
  Company Number: US-BAYER-2011-109339

PATIENT
  Age: 16 Year
  Sex: Female
  Weight: 113.38 kg

DRUGS (5)
  1. FLONASE [Concomitant]
     Dosage: UNK
     Dates: start: 20030101
  2. ASTHMADEX [Concomitant]
     Dosage: UNK
     Dates: start: 20030101
  3. CLARITIN [Concomitant]
  4. YAZ [Suspect]
     Dosage: UNK
     Dates: start: 20090501, end: 20091201
  5. ALBUTEROL [Concomitant]
     Dosage: UNK
     Dates: start: 19970101

REACTIONS (2)
  - MENTAL DISORDER [None]
  - PULMONARY EMBOLISM [None]
